FAERS Safety Report 5927952-2 (Version None)
Quarter: 2008Q4

REPORT INFORMATION
  Report Type: 
  Country: None (occurrence: None)
  Receive Date: 20081022
  Receipt Date: 20081022
  Transmission Date: 20090506
  Serious: Yes (Life-Threatening)
  Sender: FDA-Public Use
  Company Number: None

PATIENT
  Sex: Female
  Weight: 68.0396 kg

DRUGS (1)
  1. SEROQUEL [Suspect]
     Indication: PSYCHOTIC DISORDER
     Dosage: ONE TABLET TWICE PER DAY 047 (ORAL
     Route: 048
     Dates: start: 20080917

REACTIONS (2)
  - INTENTIONAL DRUG MISUSE [None]
  - SPEECH DISORDER [None]
